FAERS Safety Report 9117265 (Version 2)
Quarter: 2013Q2

REPORT INFORMATION
  Report Type: Spontaneous
  Country: FR (occurrence: FR)
  Receive Date: 20130225
  Receipt Date: 20130418
  Transmission Date: 20140414
  Serious: Yes (Other)
  Sender: FDA-Public Use
  Company Number: FR-JNJFOC-20130211168

PATIENT
  Age: 73 Year
  Sex: Male
  Weight: 68.93 kg

DRUGS (4)
  1. XARELTO [Suspect]
     Indication: THROMBOSIS PROPHYLAXIS
     Route: 048
     Dates: start: 20121123
  2. XARELTO [Suspect]
     Indication: KNEE ARTHROPLASTY
     Route: 048
     Dates: start: 20121123
  3. SERC [Concomitant]
     Indication: VERTIGO
     Route: 048
     Dates: start: 1995
  4. GINKOR FORT [Concomitant]
     Indication: VENOUS THROMBOSIS
     Route: 048
     Dates: start: 2000

REACTIONS (3)
  - Deep vein thrombosis [Recovered/Resolved]
  - Drug ineffective [Unknown]
  - Drug prescribing error [Unknown]
